FAERS Safety Report 14868148 (Version 3)
Quarter: 2018Q3

REPORT INFORMATION
  Report Type: Report from Study
  Country: US (occurrence: US)
  Receive Date: 20180509
  Receipt Date: 20180912
  Transmission Date: 20181010
  Serious: Yes (Other)
  Sender: FDA-Public Use
  Company Number: US-CIPLA (EU) LIMITED-2018US17250

PATIENT

DRUGS (1)
  1. EMTRICITABINE/TENOFOVIR [Suspect]
     Active Substance: EMTRICITABINE\TENOFOVIR
     Indication: PROPHYLAXIS AGAINST HIV INFECTION
     Dosage: 200 MG FTC/300 MG TDF, ONCE WEEKLY (AT STUDY ENROLLMENT AND AT WEEKS 1?3)
     Route: 048

REACTIONS (2)
  - Treatment failure [Unknown]
  - Drug resistance [Unknown]
